FAERS Safety Report 4510213-6 (Version None)
Quarter: 2004Q4

REPORT INFORMATION
  Report Type: 
  Country: None (occurrence: None)
  Receive Date: 20041124
  Receipt Date: 20040519
  Transmission Date: 20050328
  Serious: Yes (Death)
  Sender: FDA-Public Use
  Company Number: GB-ROCHE-368139

PATIENT
  Age: 22 Year
  Sex: Male
  Weight: 96 kg

DRUGS (4)
  1. ROACCUTANE [Suspect]
     Indication: ACNE
     Dosage: DOSAGE REGIMEN REPORTED AS: 10MG/WEEK.
     Route: 048
     Dates: start: 20040319
  2. LOFEPRAMINE [Concomitant]
     Indication: ANXIETY
     Dosage: TAKEN DAILY.
     Route: 048
     Dates: start: 20040414
  3. RISPERIDONE [Concomitant]
     Indication: SCHIZOPHRENIA
     Route: 030
     Dates: start: 20030615
  4. CIPRAMIL [Concomitant]
     Indication: ANXIETY
     Dosage: TAKEN DAILY.
     Route: 048
     Dates: start: 20010615, end: 20040414

REACTIONS (1)
  - COMPLETED SUICIDE [None]
